FAERS Safety Report 9175370 (Version 3)
Quarter: 2013Q3

REPORT INFORMATION
  Report Type: Report from Study
  Country: JP (occurrence: JP)
  Receive Date: 20130320
  Receipt Date: 20130717
  Transmission Date: 20140515
  Serious: Yes (Hospitalization)
  Sender: FDA-Public Use
  Company Number: JP-ROCHE-1202509

PATIENT
  Age: 60 Year
  Sex: Female
  Weight: 50 kg

DRUGS (9)
  1. TRASTUZUMAB [Suspect]
     Indication: BREAST CANCER
     Dosage: LOADING DOSE, CYCLE 1
     Route: 041
     Dates: start: 20121218
  2. TRASTUZUMAB [Suspect]
     Dosage: MAINTENANCE DOSE
     Route: 041
     Dates: end: 20130219
  3. GRANISETRON [Suspect]
     Indication: PREMEDICATION
     Route: 041
     Dates: start: 20121218, end: 20130305
  4. MAGNESIUM OXIDE [Suspect]
     Indication: CONSTIPATION
     Route: 048
     Dates: start: 20121031
  5. PACLITAXEL [Suspect]
     Indication: BREAST CANCER
     Route: 041
     Dates: start: 20121218, end: 20130305
  6. FAMOTIDINE [Suspect]
     Indication: PREMEDICATION
     Route: 041
     Dates: start: 20121218, end: 20130305
  7. DEXCHLORPHENIRAMINE MALEATE [Suspect]
     Indication: PREMEDICATION
     Route: 041
     Dates: start: 20121218, end: 20130305
  8. DEXAMETHASONE SODIUM PHOSPHATE [Suspect]
     Indication: PREMEDICATION
     Route: 041
     Dates: start: 20121218, end: 20130305
  9. PLACEBO [Suspect]
     Indication: BREAST CANCER
     Dosage: DOSAGE IS UNCERTAIN
     Route: 042
     Dates: start: 20121218, end: 20130219

REACTIONS (1)
  - Interstitial lung disease [Recovered/Resolved]
